FAERS Safety Report 5966766-4 (Version None)
Quarter: 2008Q4

REPORT INFORMATION
  Report Type: 
  Country: None (occurrence: None)
  Receive Date: 20081125
  Receipt Date: 20081119
  Transmission Date: 20090506
  Serious: Yes (Other)
  Sender: FDA-Public Use
  Company Number: FR-ALLERGAN-0814842US

PATIENT
  Sex: Female

DRUGS (1)
  1. BOTULINUM TOXIN TYPE A [Suspect]
     Indication: SKIN WRINKLING
     Dosage: UNK, SINGLE
     Route: 030
     Dates: start: 20080601, end: 20080601

REACTIONS (4)
  - ERYSIPELAS [None]
  - FACE OEDEMA [None]
  - INFLUENZA LIKE ILLNESS [None]
  - INJECTION SITE OEDEMA [None]
